FAERS Safety Report 4359354-7 (Version None)
Quarter: 2004Q2

REPORT INFORMATION
  Report Type: 
  Country: None (occurrence: None)
  Receive Date: 20040512
  Receipt Date: 20040429
  Transmission Date: 20050107
  Serious: Yes (Hospitalization)
  Sender: FDA-Public Use
  Company Number: PERC20040004

PATIENT
  Age: 66 Year
  Sex: Male
  Weight: 46 kg

DRUGS (5)
  1. PERCOCET-5 [Suspect]
     Indication: PAIN
     Dosage: 2 TABS Q4H PRN PO
     Route: 048
     Dates: start: 20030101
  2. LEUCOVORIN CALCIUM [Concomitant]
  3. PTK787 / ZK 222584 VS. PLACEBO [Concomitant]
  4. OXALIPLATIN [Concomitant]
  5. FLUOROURACIL [Concomitant]

REACTIONS (13)
  - ASTHENIA [None]
  - BACK PAIN [None]
  - CATHETER SEPSIS [None]
  - DIARRHOEA [None]
  - DISORIENTATION [None]
  - DYSPNOEA [None]
  - HYPOTENSION [None]
  - NAUSEA [None]
  - NEUTROPENIA [None]
  - OVERDOSE [None]
  - PNEUMONIA [None]
  - TACHYCARDIA [None]
  - VOMITING [None]
